FAERS Safety Report 17598784 (Version 4)
Quarter: 2021Q4

REPORT INFORMATION
  Report Type: Spontaneous
  Country: ES (occurrence: ES)
  Receive Date: 20200330
  Receipt Date: 20211115
  Transmission Date: 20220303
  Serious: Yes (Hospitalization, Other)
  Sender: FDA-Public Use
  Company Number: ES-DSJP-DSE-2020-106491

PATIENT
  Age: 67 Year
  Sex: Female

DRUGS (2)
  1. OLMESARTAN MEDOXOMIL [Suspect]
     Active Substance: OLMESARTAN MEDOXOMIL
     Indication: Hypertension
     Dosage: UNK
  2. OLMESARTAN MEDOXOMIL [Suspect]
     Active Substance: OLMESARTAN MEDOXOMIL
     Dosage: UNK
     Route: 048

REACTIONS (12)
  - Sprue-like enteropathy [Recovered/Resolved]
  - Iron deficiency anaemia [Recovered/Resolved]
  - Lymphocytic infiltration [Recovered/Resolved]
  - Eosinophil count [Recovered/Resolved]
  - Coeliac disease [Recovered/Resolved]
  - Intestinal villi atrophy [Recovered/Resolved]
  - Gastritis erosive [Recovered/Resolved]
  - Enteritis [Recovered/Resolved]
  - Weight decreased [Unknown]
  - Gastritis [Recovered/Resolved]
  - Diarrhoea [Recovered/Resolved]
  - Gastrointestinal disorder [Recovered/Resolved]
